FAERS Safety Report 5224061-5 (Version None)
Quarter: 2007Q1

REPORT INFORMATION
  Report Type: 
  Country: None (occurrence: None)
  Receive Date: 20070130
  Receipt Date: 20070125
  Transmission Date: 20070707
  Serious: Yes (Life-Threatening, Hospitalization)
  Sender: FDA-Public Use
  Company Number: 2007SE00478

PATIENT
  Sex: Male

DRUGS (2)
  1. BLOPRESS [Suspect]
     Indication: SUICIDE ATTEMPT
     Dosage: ABOUT 100 TABLETS (1 IN 1 D)
     Route: 048
     Dates: start: 20070122, end: 20070122
  2. ADALAT [Suspect]
     Indication: SUICIDE ATTEMPT
     Dosage: ABOUT 100 TABLETS (1 IN 1 D)
     Route: 048
     Dates: start: 20070122, end: 20070122

REACTIONS (2)
  - INTENTIONAL OVERDOSE [None]
  - SHOCK [None]
